FAERS Safety Report 9601992 (Version 2)
Quarter: 2013Q4

REPORT INFORMATION
  Report Type: Spontaneous
  Country: US (occurrence: US)
  Receive Date: 20131007
  Receipt Date: 20131007
  Transmission Date: 20140711
  Serious: Yes (Death, Hospitalization, Other)
  Sender: FDA-Public Use
  Company Number: PHEH2013US018203

PATIENT
  Age: 57 Year
  Sex: Male

DRUGS (18)
  1. CLOZARIL [Suspect]
     Dosage: 150 MG, BID
     Route: 048
  2. CLOZARIL [Suspect]
     Dosage: 100 MG, DAILY
     Route: 048
  3. DECADRAN [Concomitant]
     Dosage: 10 MG, MORNING
     Route: 042
  4. DECADRAN [Concomitant]
     Dosage: 4 MG, BID
     Route: 048
  5. METFORMINE [Concomitant]
     Dosage: 1000 MG IN THE MORNING AND 1500 MG AT  BEDTIME
     Route: 048
  6. METFORMINE [Concomitant]
     Dosage: 500 UNK, UNK
     Route: 048
  7. COGENTIN [Concomitant]
     Dosage: 2 MG, AT BEDTIME
     Route: 048
  8. HYDROCHLOROTH [Concomitant]
     Dosage: 25 MG, DAILY
  9. LANTUS [Concomitant]
     Dosage: 15 UNIT AT BEDTIME
  10. LISINOPRIL [Concomitant]
     Dosage: 40 MG, DAILY
     Route: 048
  11. OXYCONTIN [Concomitant]
     Dosage: 20 MG, EVERY 12 HOURS
     Route: 048
  12. OXYCODON [Concomitant]
     Indication: PAIN
     Dosage: 1 DF, 6 HOURS
  13. POTASSIUM [Concomitant]
     Dosage: 10 MEG DAILY
  14. ZANTAC [Concomitant]
     Dosage: 150 MG, DAILY
     Route: 048
  15. FIBERCON [Concomitant]
     Dosage: UNK ON DAILY BASIS
  16. ASPIRIN [Concomitant]
     Dosage: UNK
  17. RANITIDINE [Concomitant]
     Dosage: 150 MG, BID
     Route: 048
  18. SIMVASTATIN [Concomitant]
     Dosage: 20 MG,AT BEDTIME

REACTIONS (24)
  - Lung neoplasm malignant [Fatal]
  - Metastases to central nervous system [Fatal]
  - Oedema [Unknown]
  - Gait disturbance [Unknown]
  - General physical health deterioration [Unknown]
  - Abdominal pain [Unknown]
  - Constipation [Unknown]
  - Vomiting [Recovered/Resolved]
  - Nausea [Recovered/Resolved]
  - Dizziness [Recovering/Resolving]
  - Metastases to nervous system [Unknown]
  - Metastases to bone [Unknown]
  - Skin hyperpigmentation [Unknown]
  - Mental impairment [Unknown]
  - Hyperglycaemia [Unknown]
  - Hypokalaemia [Unknown]
  - Oxygen saturation decreased [Unknown]
  - Weight decreased [Unknown]
  - Heart rate increased [Not Recovered/Not Resolved]
  - Body temperature decreased [Unknown]
  - Leukocytosis [Unknown]
  - Blood pressure diastolic decreased [Unknown]
  - White blood cell count increased [Unknown]
  - Neutrophil count increased [Unknown]
